FAERS Safety Report 11413952 (Version 1)
Quarter: 2015Q3

REPORT INFORMATION
  Report Type: Spontaneous
  Country: US (occurrence: US)
  Receive Date: 20150824
  Receipt Date: 20150824
  Transmission Date: 20151125
  Serious: No
  Sender: FDA-Public Use
  Company Number: US-GLAXOSMITHKLINE-US2015GSK110188

PATIENT
  Sex: Female
  Weight: 83.5 kg

DRUGS (7)
  1. GRALISE [Concomitant]
     Active Substance: GABAPENTIN
  2. PROAIR HFA [Concomitant]
     Active Substance: ALBUTEROL SULFATE
  3. LASIX [Concomitant]
     Active Substance: FUROSEMIDE
  4. VITAMIN D2 [Concomitant]
     Active Substance: ERGOCALCIFEROL
  5. FENTANYL. [Concomitant]
     Active Substance: FENTANYL
  6. MEKINIST [Suspect]
     Active Substance: TRAMETINIB DIMETHYL SULFOXIDE
     Indication: ROSAI-DORFMAN SYNDROME
     Dosage: 2 MG, QD
     Route: 048
     Dates: start: 20150601
  7. KETOCONAZOLE. [Concomitant]
     Active Substance: KETOCONAZOLE

REACTIONS (2)
  - Diarrhoea [Unknown]
  - Rash [Unknown]
